FAERS Safety Report 9258283 (Version 4)
Quarter: 2014Q3

REPORT INFORMATION
  Report Type: Report from Study
  Country: JP (occurrence: JP)
  Receive Date: 20130426
  Receipt Date: 20140722
  Transmission Date: 20150326
  Serious: Yes (Hospitalization)
  Sender: FDA-Public Use
  Company Number: JP-UCBSA-077186

PATIENT
  Age: 72 Year
  Sex: Female
  Weight: 52.5 kg

DRUGS (22)
  1. CERTOLIZUMAB PEGOL RA [Suspect]
     Active Substance: CERTOLIZUMAB PEGOL
     Dosage: 400 MG, EV 4 WEEKS
     Route: 058
     Dates: start: 2011, end: 20110722
  2. LOSARTAN POTASSIUM. [Concomitant]
     Active Substance: LOSARTAN POTASSIUM
     Indication: HYPERTENSION
     Dosage: 50 MG, ONCE DAILY (QD)
     Route: 048
     Dates: start: 20100321
  3. TRAMADOL HYDROCHLORIDE ACETAMINOPHEN COMBINED [Concomitant]
     Indication: ARTHRITIS
     Dosage: 1 DF, ONCE DAILY (QD)
     Route: 048
     Dates: start: 20130109
  4. TRAMADOL HYDROCHLORIDE ACETAMINOPHEN COMBINED [Concomitant]
     Indication: ARTHRITIS
     Dosage: 1 DF, ONCE DAILY (QD)
     Route: 048
     Dates: start: 20130109
  5. METOCLOPRAMIDE. [Concomitant]
     Active Substance: METOCLOPRAMIDE
     Indication: PROPHYLAXIS
     Dosage: 5 MG, 3X/DAY (TID)
     Route: 048
     Dates: start: 20130108
  6. CERTOLIZUMAB PEGOL RA [Suspect]
     Active Substance: CERTOLIZUMAB PEGOL
     Dosage: 400 MG, EV 4 WEEKS
     Route: 058
     Dates: start: 201103, end: 20110408
  7. FOLIC ACID. [Concomitant]
     Active Substance: FOLIC ACID
     Indication: PROPHYLAXIS
     Dosage: 5 MG, WEEKLY (QW)
     Route: 048
     Dates: start: 20071119
  8. ALENDRONATE SODIUM HYDRATE [Concomitant]
     Active Substance: ALENDRONATE SODIUM
     Indication: OSTEOPOROSIS
     Dosage: 35 MG, WEEKLY (QW)
     Route: 048
     Dates: start: 20130323
  9. AZELNIDIPINE [Concomitant]
     Active Substance: AZELNIDIPINE
     Indication: HYPERTENSION
     Dosage: 16 MG, ONCE DAILY (QD)
     Route: 048
     Dates: start: 20121003
  10. CELECOXIB. [Concomitant]
     Active Substance: CELECOXIB
     Indication: RHEUMATOID ARTHRITIS
     Dosage: 200 MG, 2X/DAY (BID)
     Route: 048
     Dates: start: 20130223
  11. LOXOPROFEN SODIUM HYDRATE [Concomitant]
     Active Substance: LOXOPROFEN SODIUM DIHYDRATE
     Indication: RHEUMATOID ARTHRITIS
     Dosage: UNK UNK, AS NEEDED (PRN)
     Route: 062
     Dates: start: 20100727
  12. FELBINAC [Concomitant]
     Active Substance: FELBINAC
     Indication: RHEUMATOID ARTHRITIS
     Dosage: UNK UNK, AS NEEDED (PRN)
     Route: 062
     Dates: start: 20110625
  13. CARBOCISTEINE [Concomitant]
     Active Substance: CARBOCYSTEINE
     Indication: PRODUCTIVE COUGH
     Dosage: 500 MG, 3X/DAY (TID)
     Route: 048
     Dates: start: 20121211
  14. CERTOLIZUMAB PEGOL RA [Suspect]
     Active Substance: CERTOLIZUMAB PEGOL
     Dosage: 200 MG, EV 2 WEEKS(QOW)
     Route: 058
     Dates: start: 20110826, end: 20111004
  15. CERTOLIZUMAB PEGOL RA [Suspect]
     Active Substance: CERTOLIZUMAB PEGOL
     Dosage: 100 MG, EV 2 WEEKS(QOW)
     Route: 058
     Dates: start: 200910, end: 20100226
  16. CERTOLIZUMAB PEGOL RA [Suspect]
     Active Substance: CERTOLIZUMAB PEGOL
     Indication: RHEUMATOID ARTHRITIS
     Dosage: 200 MG, EV 2 WEEKS(QOW)
     Route: 058
     Dates: start: 20090825, end: 200909
  17. CERTOLIZUMAB PEGOL RA [Suspect]
     Active Substance: CERTOLIZUMAB PEGOL
     Dosage: 400 MG, EV 4 WEEKS
     Route: 058
     Dates: start: 20100309, end: 20110207
  18. CERTOLIZUMAB PEGOL RA [Suspect]
     Active Substance: CERTOLIZUMAB PEGOL
     Dosage: 200 MG, EV 2 WEEKS(QOW)
     Route: 058
     Dates: start: 20111115, end: 20130315
  19. CERTOLIZUMAB PEGOL RA [Suspect]
     Active Substance: CERTOLIZUMAB PEGOL
     Dosage: 200 MG, EV 2 WEEKS(QOW)
     Route: 058
     Dates: start: 20130402, end: 20130416
  20. METHOTREXATE [Concomitant]
     Active Substance: METHOTREXATE
     Indication: RHEUMATOID ARTHRITIS
     Dosage: 8 MG, WEEKLY (QW)
     Route: 048
     Dates: start: 20090324
  21. PREDNISOLONE. [Concomitant]
     Active Substance: PREDNISOLONE
     Indication: RHEUMATOID ARTHRITIS
     Dosage: 3 MG, ONCE DAILY (QD)
     Route: 048
     Dates: start: 20081009
  22. ZOLPIDEM TARTRATE. [Concomitant]
     Active Substance: ZOLPIDEM TARTRATE
     Indication: INSOMNIA
     Dosage: 5 MG, ONCE DAILY (QD)
     Route: 048
     Dates: start: 20111213

REACTIONS (2)
  - Pneumonia chlamydial [Recovered/Resolved]
  - Arthritis [Recovered/Resolved]

NARRATIVE: CASE EVENT DATE: 20130129
